FAERS Safety Report 8059137-0 (Version None)
Quarter: 2012Q1

REPORT INFORMATION
  Report Type: 
  Country: None (occurrence: None)
  Receive Date: 20120120
  Receipt Date: 20120110
  Transmission Date: 20120608
  Serious: Yes (Hospitalization)
  Sender: FDA-Public Use
  Company Number: US-JNJFOC-20110412493

PATIENT
  Age: 26 Year
  Sex: Male
  Weight: 89.6 kg

DRUGS (3)
  1. ALCOHOL [Suspect]
     Indication: PRODUCT USED FOR UNKNOWN INDICATION
  2. VENLAFAXINE [Concomitant]
  3. EXTRA STRENGTH TYLENOL PM [Suspect]
     Indication: PRODUCT USED FOR UNKNOWN INDICATION

REACTIONS (6)
  - INTENTIONAL OVERDOSE [None]
  - ALCOHOLIC LIVER DISEASE [None]
  - HEPATIC FUNCTION ABNORMAL [None]
  - HAEMATEMESIS [None]
  - GASTRITIS ALCOHOLIC [None]
  - VOMITING [None]
